FAERS Safety Report 20210893 (Version 1)
Quarter: 2021Q4

REPORT INFORMATION
  Report Type: Report from Study
  Country: US (occurrence: US)
  Receive Date: 20211221
  Receipt Date: 20211221
  Transmission Date: 20220303
  Serious: Yes (Hospitalization)
  Sender: FDA-Public Use
  Company Number: US-TAKEDA-2021TUS080389

PATIENT
  Age: 57 Year
  Sex: Female

DRUGS (18)
  1. LANADELUMAB [Suspect]
     Active Substance: LANADELUMAB
     Indication: Hereditary angioedema
     Dosage: 300 MILLIGRAM, Q2WEEKS
     Route: 065
     Dates: start: 20190807, end: 20200923
  2. LANADELUMAB [Suspect]
     Active Substance: LANADELUMAB
     Dosage: 300 MILLIGRAM, Q4WEEKS
     Route: 065
     Dates: start: 20201006
  3. CLOBETASOL [Concomitant]
     Active Substance: CLOBETASOL
     Indication: Cutaneous lupus erythematosus
     Dosage: 1 DOSAGE FORM
     Route: 061
     Dates: start: 2016
  4. DESONIDE [Concomitant]
     Active Substance: DESONIDE
     Indication: Cutaneous lupus erythematosus
     Dosage: 1 DOSAGE FORM
     Route: 061
     Dates: start: 2005
  5. DOXYCYCLINE [Concomitant]
     Active Substance: DOXYCYCLINE
     Indication: Cutaneous lupus erythematosus
     Dosage: 100 MILLIGRAM
     Route: 048
     Dates: start: 20190501
  6. ASPIRIN [Concomitant]
     Active Substance: ASPIRIN
     Indication: Headache
     Dosage: 325 MILLIGRAM
     Route: 048
     Dates: start: 1985
  7. ACETAMINOPHEN [Concomitant]
     Active Substance: ACETAMINOPHEN
     Indication: Headache
     Dosage: 325 MILLIGRAM
     Route: 048
     Dates: start: 1985
  8. OXYCONTIN [Concomitant]
     Active Substance: OXYCODONE HYDROCHLORIDE
     Indication: Back pain
     Dosage: 30 MILLIGRAM
     Route: 048
     Dates: start: 20170401
  9. IBUPROFEN [Concomitant]
     Active Substance: IBUPROFEN
     Indication: Headache
     Dosage: 200 MILLIGRAM
     Route: 048
     Dates: start: 20170711
  10. AMLODIPINE BESYLATE [Concomitant]
     Active Substance: AMLODIPINE BESYLATE
     Indication: Hypertension
     Dosage: 10 MILLIGRAM
     Route: 048
     Dates: start: 20180429
  11. ROSUVASTATIN CALCIUM [Concomitant]
     Active Substance: ROSUVASTATIN CALCIUM
     Indication: Dyslipidaemia
     Dosage: 20 MILLIGRAM
     Route: 048
     Dates: start: 20180621
  12. HYDROCODONE [Concomitant]
     Active Substance: HYDROCODONE
     Indication: Back pain
     Dosage: 1 DOSAGE FORM
     Route: 065
     Dates: start: 20210929
  13. TIOTROPIUM BROMIDE [Concomitant]
     Active Substance: TIOTROPIUM BROMIDE
     Indication: Chronic obstructive pulmonary disease
     Dosage: 2 DOSAGE FORM
     Route: 055
     Dates: start: 20210802
  14. MELATONIN [Concomitant]
     Active Substance: MELATONIN
     Indication: Anxiety
     Dosage: 3 MILLIGRAM
     Route: 048
     Dates: start: 20210517
  15. ATARAX [Concomitant]
     Active Substance: HYDROXYZINE HYDROCHLORIDE
     Indication: Anxiety
     Dosage: 25 MILLIGRAM
     Route: 048
     Dates: start: 20210517
  16. GABAPENTIN [Concomitant]
     Active Substance: GABAPENTIN
     Indication: Back pain
     Dosage: 100 MILLIGRAM
     Route: 048
     Dates: start: 20210506
  17. BUDESONIDE [Concomitant]
     Active Substance: BUDESONIDE
     Indication: Chronic obstructive pulmonary disease
     Dosage: 90 MICROGRAM
     Route: 055
     Dates: start: 20210517
  18. WELLBUTRIN XL [Concomitant]
     Active Substance: BUPROPION HYDROCHLORIDE
     Indication: Ex-tobacco user
     Dosage: 300 MILLIGRAM
     Route: 048
     Dates: start: 20210419

REACTIONS (1)
  - Humerus fracture [Recovering/Resolving]

NARRATIVE: CASE EVENT DATE: 20211028
